FAERS Safety Report 24635898 (Version 1)
Quarter: 2024Q4

REPORT INFORMATION
  Report Type: Spontaneous
  Country: US (occurrence: US)
  Receive Date: 20241119
  Receipt Date: 20241119
  Transmission Date: 20250115
  Serious: No
  Sender: CATALYST PHARMA
  Company Number: US-CATALYST PHARMACEUTICALS-US-CATA-24-01052

PATIENT
  Age: 7 Year
  Sex: Female
  Weight: 25.995 kg

DRUGS (7)
  1. AGAMREE [Suspect]
     Active Substance: VAMOROLONE
     Indication: Duchenne muscular dystrophy
     Dosage: 3.2 ML DAILY
     Route: 048
     Dates: start: 20240525
  2. PREDNISONE [Concomitant]
     Active Substance: PREDNISONE
     Indication: Product used for unknown indication
     Dosage: 10 MG DAILY
     Route: 065
  3. EXONDYS 51 [Concomitant]
     Active Substance: ETEPLIRSEN
     Indication: Product used for unknown indication
     Dosage: 100MG/2ML WEEKLY
     Route: 042
  4. ADVANCED PROBIOTIC [Concomitant]
     Indication: Product used for unknown indication
     Dosage: ONE CAPSULE DAILY
     Route: 065
  5. SYMBICORT [Concomitant]
     Active Substance: BUDESONIDE\FORMOTEROL FUMARATE DIHYDRATE
     Indication: Product used for unknown indication
     Dosage: 80-4.5 TWO PUFFS TWICE DAILY
     Route: 065
  6. QC VITAMIN D3 [Concomitant]
     Indication: Product used for unknown indication
     Dosage: 10MCG/400UNITS TWICE DAILY
     Route: 048
  7. SV MAGNESIUM [Concomitant]
     Indication: Product used for unknown indication
     Dosage: 100 MG TWICE DAILY
     Route: 048

REACTIONS (1)
  - Flushing [Not Recovered/Not Resolved]

NARRATIVE: CASE EVENT DATE: 20240901
